FAERS Safety Report 4923344-3 (Version None)
Quarter: 2006Q1

REPORT INFORMATION
  Report Type: 
  Country: None (occurrence: None)
  Receive Date: 20060222
  Receipt Date: 20060222
  Transmission Date: 20060701
  Serious: No
  Sender: FDA-Public Use
  Company Number: None

PATIENT

DRUGS (2)
  1. CYCLOPENTOLATE HYDROCHLORIDE [Suspect]
     Dosage: SOLUTION/DROPS
  2. TROPICAMIDE [Suspect]
     Dosage: SOLUTION/DROPS

REACTIONS (1)
  - MEDICATION ERROR [None]
